FAERS Safety Report 7842673-7 (Version None)
Quarter: 2011Q4

REPORT INFORMATION
  Report Type: 
  Country: None (occurrence: None)
  Receive Date: 20111025
  Receipt Date: 20111012
  Transmission Date: 20120403
  Serious: Yes (Other)
  Sender: FDA-Public Use
  Company Number: US-BAYER-2011-028188

PATIENT
  Age: 31 Year
  Sex: Female
  Weight: 74.83 kg

DRUGS (5)
  1. YASMIN [Suspect]
     Indication: CONTRACEPTION
     Dosage: UNK
     Dates: start: 20060101, end: 20061201
  2. DROSPIRENONE AND ETHINYL ESTRADIOL [Suspect]
     Indication: CONTRACEPTION
     Dosage: UNK
     Dates: start: 20080701, end: 20091001
  3. HYDROXYZINE [Concomitant]
     Dosage: 25 MG, UNK
     Dates: start: 20090711
  4. FLUZONE PF 2010 [Concomitant]
     Dosage: 0.5 ML, UNK
     Dates: start: 20100827
  5. TYLENOL-500 [Concomitant]
     Dosage: UNK
     Dates: start: 20100308

REACTIONS (3)
  - CHOLECYSTITIS CHRONIC [None]
  - PAIN [None]
  - ABDOMINAL PAIN UPPER [None]
